FAERS Safety Report 5368216-8 (Version None)
Quarter: 2007Q2

REPORT INFORMATION
  Report Type: 
  Country: None (occurrence: None)
  Receive Date: 20070625
  Receipt Date: 20070618
  Transmission Date: 20071010
  Serious: Yes (Other)
  Sender: FDA-Public Use
  Company Number: PHEH2007US08937

PATIENT
  Age: 77 Year
  Sex: Female

DRUGS (10)
  1. STALEVO 100 [Suspect]
     Indication: PARKINSON'S DISEASE
     Dosage: 50 MG, TID
     Route: 048
     Dates: start: 20060301
  2. ACIPHEX [Concomitant]
  3. PRAVACHOL [Concomitant]
  4. REMERON [Concomitant]
  5. FERROUS SULFATE [Concomitant]
  6. EFFEXOR [Concomitant]
  7. DYAZIDE [Concomitant]
  8. LUNESTA [Concomitant]
  9. METAMUCIL [Concomitant]
  10. CALTRATE [Concomitant]

REACTIONS (2)
  - HAEMOGLOBIN DECREASED [None]
  - HAEMORRHAGE [None]
